FAERS Safety Report 19790021 (Version 1)
Quarter: 2021Q3

REPORT INFORMATION
  Report Type: Spontaneous
  Country: PT (occurrence: US)
  Receive Date: 20210905
  Receipt Date: 20210905
  Transmission Date: 20211014
  Serious: Yes (Disabling, Other)
  Sender: FDA-Public Use
  Company Number: US-GE HEALTHCARE LIFE SCIENCES-2021CSU004433

PATIENT
  Age: 44 Year
  Sex: Female

DRUGS (4)
  1. GADOBENATE DIMEGLUMINE [Suspect]
     Active Substance: GADOBENATE DIMEGLUMINE
     Indication: MAGNETIC RESONANCE IMAGING
     Dosage: ?PRECIPITATING DOSE? OF 0.1 MMOL/KG
     Route: 065
  2. GADOBENATE DIMEGLUMINE [Suspect]
     Active Substance: GADOBENATE DIMEGLUMINE
     Indication: TINNITUS
  3. GADOLINIUM (UNSPECIFIED) [Suspect]
     Active Substance: GADOLINIUM
     Indication: TINNITUS
  4. GADOLINIUM (UNSPECIFIED) [Suspect]
     Active Substance: GADOLINIUM
     Indication: MAGNETIC RESONANCE IMAGING
     Dosage: UNK UNK, SINGLE
     Route: 065

REACTIONS (1)
  - Gadolinium deposition disease [Unknown]
